FAERS Safety Report 18635287 (Version 4)
Quarter: 2021Q2

REPORT INFORMATION
  Report Type: Report from Study
  Country: US (occurrence: US)
  Receive Date: 20201218
  Receipt Date: 20210618
  Transmission Date: 20210717
  Serious: Yes (Hospitalization)
  Sender: FDA-Public Use
  Company Number: US-TAKEDA-2020TUS058900

PATIENT
  Sex: Male
  Weight: 9 kg

DRUGS (12)
  1. CUVITRU [Suspect]
     Active Substance: HUMAN IMMUNOGLOBULIN G
     Indication: IMMUNODEFICIENCY
  2. LANSOPRAZOLE. [Concomitant]
     Active Substance: LANSOPRAZOLE
  3. CUVITRU [Suspect]
     Active Substance: HUMAN IMMUNOGLOBULIN G
     Indication: DIGEORGE^S SYNDROME
     Dosage: 1 GRAM, Q2WEEKS
     Route: 058
     Dates: start: 20200901
  4. DIPHENHYDRAMINE. [Concomitant]
     Active Substance: DIPHENHYDRAMINE
  5. LIDOCAINE. [Concomitant]
     Active Substance: LIDOCAINE
  6. PROPRANOLOL [Concomitant]
     Active Substance: PROPRANOLOL HYDROCHLORIDE
  7. AZITHROMYCIN ANHYDROUS. [Concomitant]
     Active Substance: AZITHROMYCIN ANHYDROUS
  8. ASPIRIN (E.C.) [Concomitant]
     Active Substance: ASPIRIN
  9. FLUCONAZOLE. [Concomitant]
     Active Substance: FLUCONAZOLE
  10. SULFAMETHOXAZOLE AND TRIMETHOPRIM [Concomitant]
     Active Substance: SULFAMETHOXAZOLE\TRIMETHOPRIM
  11. FUROSEMIDE. [Concomitant]
     Active Substance: FUROSEMIDE
  12. ACETAMINOPHEN. [Concomitant]
     Active Substance: ACETAMINOPHEN

REACTIONS (4)
  - Product use in unapproved indication [Unknown]
  - Rhinovirus infection [Unknown]
  - Product dose omission issue [Unknown]
  - Infusion site extravasation [Unknown]
